FAERS Safety Report 6094914-7 (Version None)
Quarter: 2009Q1

REPORT INFORMATION
  Report Type: 
  Country: None (occurrence: None)
  Receive Date: 20090225
  Receipt Date: 20090217
  Transmission Date: 20090719
  Serious: Yes (Hospitalization, Disabling)
  Sender: FDA-Public Use
  Company Number: 2009MB000014

PATIENT
  Age: 35 Year
  Sex: Female

DRUGS (1)
  1. KEFLEX [Suspect]
     Indication: DRUG USE FOR UNKNOWN INDICATION
     Dosage: X1
     Dates: start: 19950915, end: 19950915

REACTIONS (6)
  - ANAPHYLACTIC REACTION [None]
  - DIABETES MELLITUS [None]
  - DIABETIC NEUROPATHY [None]
  - MYOPATHY [None]
  - PULSE ABSENT [None]
  - SPINAL DISORDER [None]
